FAERS Safety Report 5634630-6 (Version None)
Quarter: 2008Q1

REPORT INFORMATION
  Report Type: 
  Country: None (occurrence: None)
  Receive Date: 20080131
  Receipt Date: 20070927
  Transmission Date: 20080703
  Serious: No
  Sender: FDA-Public Use
  Company Number: PHEH2007US13019

PATIENT

DRUGS (1)
  1. TEKTURNA [Suspect]

REACTIONS (1)
  - COUGH [None]
